FAERS Safety Report 17323929 (Version 1)
Quarter: 2020Q1

REPORT INFORMATION
  Report Type: Spontaneous
  Country: US (occurrence: US)
  Receive Date: 20200127
  Receipt Date: 20200127
  Transmission Date: 20200409
  Serious: Yes (Other)
  Sender: FDA-Public Use
  Company Number: US-SA-2020SA019537

PATIENT
  Age: 52 Year
  Sex: Male

DRUGS (1)
  1. PRALUENT [Suspect]
     Active Substance: ALIROCUMAB
     Indication: HYPERLIPIDAEMIA
     Dosage: 75 MG, 1X
     Dates: start: 201908, end: 201908

REACTIONS (10)
  - Chills [Unknown]
  - Tremor [Unknown]
  - Loss of consciousness [Unknown]
  - Feeling abnormal [Unknown]
  - Lethargy [Unknown]
  - Feeling abnormal [Not Recovered/Not Resolved]
  - Dizziness [Unknown]
  - Headache [Unknown]
  - Myalgia [Unknown]
  - Influenza like illness [Unknown]

NARRATIVE: CASE EVENT DATE: 201908
